FAERS Safety Report 6240371-7 (Version None)
Quarter: 2009Q2

REPORT INFORMATION
  Report Type: 
  Country: None (occurrence: None)
  Receive Date: 20090623
  Receipt Date: 20080828
  Transmission Date: 20091009
  Serious: No
  Sender: FDA-Public Use
  Company Number: US-ASTRAZENECA-2008UW17831

PATIENT
  Age: 71 Year
  Sex: Female

DRUGS (3)
  1. PULMICORT FLEXHALER [Suspect]
     Route: 055
  2. AVALIDE [Concomitant]
  3. ZOCOR [Concomitant]

REACTIONS (1)
  - DIZZINESS [None]
